FAERS Safety Report 5532192-5 (Version None)
Quarter: 2007Q4

REPORT INFORMATION
  Report Type: 
  Country: None (occurrence: None)
  Receive Date: 20071203
  Receipt Date: 20071126
  Transmission Date: 20080405
  Serious: Yes (Hospitalization)
  Sender: FDA-Public Use
  Company Number: DE-AVENTIS-200712485DE

PATIENT
  Age: 59 Year
  Sex: Female
  Weight: 98 kg

DRUGS (8)
  1. TAXOTERE [Suspect]
     Dates: start: 20070830, end: 20070830
  2. DEXAMETHASONE [Concomitant]
     Indication: ANTIEMETIC SUPPORTIVE CARE
     Route: 042
     Dates: start: 20070830, end: 20070830
  3. ONDANSETRON [Concomitant]
     Indication: ANTIEMETIC SUPPORTIVE CARE
     Route: 042
     Dates: start: 20070830, end: 20070830
  4. RINGERS                            /00047801/ [Concomitant]
     Indication: INFUSION
     Route: 042
     Dates: start: 20070830, end: 20070830
  5. DIOVAN HCT [Concomitant]
     Indication: HYPERTENSION
     Route: 048
  6. BERLTHYROX [Concomitant]
     Indication: HYPOTHYROIDISM
     Route: 048
  7. METOPROLOL [Concomitant]
     Indication: HYPERTENSION
     Route: 048
  8. ASPIRIN [Concomitant]
     Indication: DRUG USE FOR UNKNOWN INDICATION
     Route: 048

REACTIONS (6)
  - CARDIAC DISORDER [None]
  - HEMIPLEGIA [None]
  - HYPOTENSION [None]
  - LEUKOPENIA [None]
  - NERVOUS SYSTEM DISORDER [None]
  - TRANSIENT ISCHAEMIC ATTACK [None]
